FAERS Safety Report 7219221-8 (Version None)
Quarter: 2011Q1

REPORT INFORMATION
  Report Type: 
  Country: None (occurrence: None)
  Receive Date: 20110111
  Receipt Date: 20110104
  Transmission Date: 20110831
  Serious: No
  Sender: FDA-Public Use
  Company Number: US-PFIZER INC-2011002047

PATIENT
  Sex: Female
  Weight: 95 kg

DRUGS (16)
  1. NEURONTIN [Concomitant]
     Dosage: 300 MG, 3X/DAY
  2. CALCIUM [Concomitant]
     Dosage: 900 MG, 1X/DAY
  3. VITAMIN D [Concomitant]
     Dosage: 1000 MG, 2X/DAY
  4. MULTI-VITAMINS [Concomitant]
     Dosage: DAILY
  5. ZYRTEC [Concomitant]
     Dosage: 10 MG, 1X/DAY
  6. SYNTHROID [Concomitant]
     Indication: THYROID DISORDER
     Dosage: 175 UG, 1X/DAY
     Route: 048
  7. ADVAIR [Concomitant]
     Indication: ASTHMA
     Dosage: 500/250 MG TWO TIMES A DAY
  8. LYRICA [Suspect]
     Dosage: 100 MG, 2X/DAY
     Route: 048
     Dates: end: 20101201
  9. FLONASE [Concomitant]
     Dosage: UNK
  10. VASOTEC [Concomitant]
     Indication: BLOOD PRESSURE ABNORMAL
     Dosage: 10 MG, 1X/DAY
  11. LYRICA [Suspect]
     Indication: NEUROPATHY PERIPHERAL
     Dosage: 50 MG, 3X/DAY
     Route: 048
     Dates: start: 20101129
  12. MAXZIDE [Concomitant]
     Dosage: 75 MG, 1X/DAY
  13. ROZEREM [Concomitant]
     Dosage: 8 MG, AS NEEDED
  14. ZETIA [Concomitant]
     Indication: BLOOD CHOLESTEROL ABNORMAL
     Dosage: 10 MG, 1X/DAY
  15. CYMBALTA [Concomitant]
     Indication: DEPRESSION
     Dosage: 30 MG, 1X/DAY
  16. NIACIN [Concomitant]
     Indication: BLOOD CHOLESTEROL ABNORMAL
     Dosage: 2000 MG, 1X/DAY

REACTIONS (2)
  - MUSCULOSKELETAL PAIN [None]
  - ARTHRALGIA [None]
